FAERS Safety Report 24834287 (Version 1)
Quarter: 2025Q1

REPORT INFORMATION
  Report Type: Spontaneous
  Country: FR (occurrence: FR)
  Receive Date: 20250113
  Receipt Date: 20250113
  Transmission Date: 20250409
  Serious: Yes (Hospitalization)
  Sender: ACCORD
  Company Number: None

PATIENT
  Age: 16 Year
  Sex: Male

DRUGS (5)
  1. ETOPOSIDE [Suspect]
     Active Substance: ETOPOSIDE
     Indication: Anaplastic large cell lymphoma T- and null-cell types
     Dates: start: 20241116, end: 20241117
  2. METHOTREXATE [Suspect]
     Active Substance: METHOTREXATE
     Indication: Opportunistic infection prophylaxis
     Dates: start: 20241113, end: 20241113
  3. CYTARABINE [Suspect]
     Active Substance: CYTARABINE
     Indication: Anaplastic large cell lymphoma T- and null-cell types
     Dates: start: 20241116, end: 20241117
  4. VALACYCLOVIR HYDROCHLORIDE [Suspect]
     Active Substance: VALACYCLOVIR HYDROCHLORIDE
     Indication: Opportunistic infection prophylaxis
     Dates: start: 20241118, end: 20241121
  5. IFOSFAMIDE [Suspect]
     Active Substance: IFOSFAMIDE
     Indication: Anaplastic large cell lymphoma T- and null-cell types
     Dates: start: 20241113, end: 20241117

REACTIONS (1)
  - Hepatic cytolysis [Recovering/Resolving]

NARRATIVE: CASE EVENT DATE: 20241121
